FAERS Safety Report 6191415-2 (Version None)
Quarter: 2009Q2

REPORT INFORMATION
  Report Type: 
  Country: None (occurrence: None)
  Receive Date: 20090515
  Receipt Date: 20090507
  Transmission Date: 20091009
  Serious: Yes (Death, Other)
  Sender: FDA-Public Use
  Company Number: US-TEVA-194364USA

PATIENT
  Sex: Male

DRUGS (1)
  1. CLARAVIS CAPSULE, ISOTRETINOIN, 20MG, 30MG, 40MG [Suspect]

REACTIONS (1)
  - COMPLETED SUICIDE [None]
